FAERS Safety Report 4851822-4 (Version None)
Quarter: 2005Q4

REPORT INFORMATION
  Report Type: 
  Country: None (occurrence: None)
  Receive Date: 20051209
  Receipt Date: 20051130
  Transmission Date: 20060501
  Serious: Yes (Hospitalization)
  Sender: FDA-Public Use
  Company Number: 2005163363

PATIENT
  Age: 59 Year
  Sex: Male
  Weight: 105.0077 kg

DRUGS (5)
  1. HEPARIN SODIUM [Suspect]
     Indication: ILL-DEFINED DISORDER
     Dosage: 11000 I.U., INTRAVENOUS
     Route: 042
     Dates: start: 20050729, end: 20050729
  2. BIVALIRUDIN (BIVALIRUDIN) [Suspect]
     Indication: ILL-DEFINED DISORDER
     Dosage: 21 ML, INTRAVENOUS
     Route: 042
     Dates: start: 20050720, end: 20050720
  3. REOPRO [Suspect]
     Indication: ILL-DEFINED DISORDER
     Dosage: 13.1 ML, INTRAVENOUS
     Route: 042
     Dates: start: 20050729, end: 20050729
  4. PLAVIX [Concomitant]
  5. ASPIRIN [Concomitant]

REACTIONS (6)
  - HAEMATOMA [None]
  - HAEMORRHAGE [None]
  - MYOCARDIAL ISCHAEMIA [None]
  - PROCEDURAL COMPLICATION [None]
  - THROMBOSIS [None]
  - VASCULAR PSEUDOANEURYSM [None]
